FAERS Safety Report 9357768 (Version 1)
Quarter: 2013Q2

REPORT INFORMATION
  Report Type: Spontaneous
  Country: US (occurrence: None)
  Receive Date: 20130619
  Receipt Date: 20130619
  Transmission Date: 20140414
  Serious: Yes (Other)
  Sender: FDA-Public Use
  Company Number: None

PATIENT
  Age: 52 Year
  Sex: Female
  Weight: 54.43 kg

DRUGS (5)
  1. COPAXONE [Suspect]
     Indication: MULTIPLE SCLEROSIS
     Dates: start: 20120810, end: 20130401
  2. VIT. D [Concomitant]
  3. VITAMIN B12 [Concomitant]
  4. CALCIUM [Concomitant]
  5. COENZYME Q 10 [Concomitant]

REACTIONS (9)
  - Palpitations [None]
  - Chest pain [None]
  - Hyperhidrosis [None]
  - Flushing [None]
  - Nausea [None]
  - Vomiting [None]
  - Dyspnoea [None]
  - Fear [None]
  - Speech disorder [None]
